FAERS Safety Report 8135266-8 (Version None)
Quarter: 2012Q1

REPORT INFORMATION
  Report Type: 
  Country: None (occurrence: None)
  Receive Date: 20120209
  Receipt Date: 20120131
  Transmission Date: 20120608
  Serious: Yes (Hospitalization, Other)
  Sender: FDA-Public Use
  Company Number: 2011SP025614

PATIENT
  Age: 31 Year
  Sex: Female
  Weight: 61.2356 kg

DRUGS (1)
  1. NUVARING [Suspect]
     Indication: MENSTRUATION IRREGULAR
     Dates: start: 20090518, end: 20090601

REACTIONS (13)
  - VOMITING [None]
  - INJECTION SITE PAIN [None]
  - INJECTION SITE SWELLING [None]
  - CROHN'S DISEASE [None]
  - MYALGIA [None]
  - GASTROOESOPHAGEAL REFLUX DISEASE [None]
  - DEEP VEIN THROMBOSIS [None]
  - PARAESTHESIA [None]
  - CARPAL TUNNEL SYNDROME [None]
  - PULMONARY EMBOLISM [None]
  - NAUSEA [None]
  - ABDOMINAL PAIN [None]
  - LEUKOPENIA [None]
